FAERS Safety Report 18739762 (Version 1)
Quarter: 2021Q1

REPORT INFORMATION
  Report Type: Spontaneous
  Country: US (occurrence: US)
  Receive Date: 20210113
  Receipt Date: 20210113
  Transmission Date: 20210419
  Serious: No
  Sender: FDA-Public Use
  Company Number: None

PATIENT
  Age: 26 Year
  Sex: Female

DRUGS (1)
  1. MAKENA [Suspect]
     Active Substance: HYDROXYPROGESTERONE CAPROATE
     Indication: PREMATURE LABOUR
     Dosage: ?          OTHER FREQUENCY:Q 1 WEEK;?
     Route: 058
     Dates: start: 20201027, end: 20210107

REACTIONS (4)
  - Visual impairment [None]
  - Tremor [None]
  - Uterine contractions during pregnancy [None]
  - Loss of consciousness [None]

NARRATIVE: CASE EVENT DATE: 20210112
